FAERS Safety Report 4452867-9 (Version None)
Quarter: 2004Q3

REPORT INFORMATION
  Report Type: 
  Country: None (occurrence: None)
  Receive Date: 20040916
  Receipt Date: 20040908
  Transmission Date: 20050211
  Serious: Yes (Hospitalization)
  Sender: FDA-Public Use
  Company Number: KII-1999-0007345

PATIENT
  Sex: Female

DRUGS (1)
  1. OXYCONTIN [Suspect]
     Dosage: 20 MG

REACTIONS (3)
  - BLOOD GLUCOSE DECREASED [None]
  - HALLUCINATION [None]
  - WEIGHT DECREASED [None]
